FAERS Safety Report 22615754 (Version 2)
Quarter: 2023Q2

REPORT INFORMATION
  Report Type: Other
  Country: JP (occurrence: None)
  Receive Date: 20230619
  Receipt Date: 20230628
  Transmission Date: 20230722
  Serious: Yes (Other)
  Sender: FDA-Public Use
  Company Number: JP-ROCHE-3368404

PATIENT

DRUGS (2)
  1. ATEZOLIZUMAB [Suspect]
     Active Substance: ATEZOLIZUMAB
     Indication: Hepatocellular carcinoma
     Route: 042
  2. BEVACIZUMAB [Suspect]
     Active Substance: BEVACIZUMAB
     Indication: Hepatocellular carcinoma
     Route: 042

REACTIONS (8)
  - Encephalitis [Unknown]
  - Proteinuria [Unknown]
  - Oesophageal varices haemorrhage [Unknown]
  - Skin toxicity [Unknown]
  - Hypertension [Unknown]
  - Hyperthyroidism [Unknown]
  - Adrenal disorder [Unknown]
  - Hepatotoxicity [Unknown]
